FAERS Safety Report 8764864 (Version 1)
Quarter: 2012Q4

REPORT INFORMATION
  Report Type: 
  Country: US (occurrence: US)
  Receive Date: 20120901
  Receipt Date: 20120901
  Transmission Date: 20130627
  Serious: No
  Sender: FDA-Public Use
  Company Number: US-009507513-1208USA005951

PATIENT

DRUGS (6)
  1. SIMVASTATIN TABLETS, USP [Suspect]
     Indication: HYPERCHOLESTEROLAEMIA
     Dosage: 40 mg, qd
     Route: 048
     Dates: end: 20120721
  2. PLAVIX [Concomitant]
  3. TOPROL XL TABLETS [Concomitant]
  4. DOXAZOSIN MESYLATE [Concomitant]
  5. LOSARTAN POTASSIUM TABLETS [Concomitant]
  6. METOPROLOL [Concomitant]
     Dosage: UNK

REACTIONS (1)
  - Myalgia [Recovering/Resolving]
